FAERS Safety Report 10757932 (Version 1)
Quarter: 2015Q1

REPORT INFORMATION
  Report Type: Report from Study
  Country: US (occurrence: US)
  Receive Date: 20150203
  Receipt Date: 20150203
  Transmission Date: 20150721
  Serious: Yes (Other)
  Sender: FDA-Public Use
  Company Number: US-SANOFI-AVENTIS-2013SA093691

PATIENT
  Age: 52 Year
  Sex: Male

DRUGS (2)
  1. AUBAGIO [Suspect]
     Active Substance: TERIFLUNOMIDE
     Indication: MULTIPLE SCLEROSIS
     Route: 048
     Dates: start: 20130730, end: 20140911
  2. RELPAX [Concomitant]
     Active Substance: ELETRIPTAN HYDROBROMIDE

REACTIONS (6)
  - Cyst [Recovering/Resolving]
  - Central nervous system lesion [Unknown]
  - Spinal disorder [Recovering/Resolving]
  - Drug dose omission [Unknown]
  - Fatigue [Recovered/Resolved]
  - Nausea [Recovered/Resolved]
